FAERS Safety Report 6557380-0 (Version None)
Quarter: 2010Q1

REPORT INFORMATION
  Report Type: 
  Country: None (occurrence: None)
  Receive Date: 20100129
  Receipt Date: 20100118
  Transmission Date: 20100710
  Serious: Yes (Other)
  Sender: FDA-Public Use
  Company Number: PHHY2010US03292

PATIENT
  Sex: Female

DRUGS (1)
  1. ZOMETA [Suspect]
     Indication: METASTASES TO BONE
     Dosage: 90 MG FOR 3-4 WEEKS
     Route: 042

REACTIONS (3)
  - FEMUR FRACTURE [None]
  - ORTHOPEDIC PROCEDURE [None]
  - STRESS FRACTURE [None]
